FAERS Safety Report 4987498-5 (Version None)
Quarter: 2006Q2

REPORT INFORMATION
  Report Type: 
  Country: None (occurrence: None)
  Receive Date: 20060501
  Receipt Date: 20051215
  Transmission Date: 20061013
  Serious: Yes (Hospitalization, Other)
  Sender: FDA-Public Use
  Company Number: US-MERCK-0512USA02465

PATIENT
  Age: 53 Year
  Sex: Female
  Weight: 61 kg

DRUGS (25)
  1. SPIRONOLACTONE [Concomitant]
     Route: 065
  2. VIOXX [Suspect]
     Indication: ARTHRITIS
     Route: 048
     Dates: start: 20010203, end: 20020410
  3. [THERAPY UNSPECIFIED] [Concomitant]
     Route: 065
  4. ADVAIR DISKUS 100/50 [Concomitant]
     Route: 065
  5. AMITRIPTYLINE HYDROCHLORIDE [Concomitant]
     Route: 048
  6. DARVOCET [Concomitant]
     Route: 065
  7. NEURONTIN [Concomitant]
     Route: 065
  8. METOPROLOL [Concomitant]
     Route: 048
  9. ESTRADIOL [Concomitant]
     Route: 048
  10. ECOTRIN [Concomitant]
     Route: 048
  11. HUMALOG [Concomitant]
     Route: 058
  12. PAXIL [Concomitant]
     Route: 048
  13. LORTAB [Concomitant]
     Route: 065
  14. FLEXERIL [Concomitant]
     Route: 065
  15. ATIVAN [Concomitant]
     Route: 065
  16. PRINIVIL [Concomitant]
     Route: 048
  17. LASIX [Concomitant]
     Route: 065
  18. ZOCOR [Concomitant]
     Route: 065
  19. LOPRESSOR [Concomitant]
     Route: 065
  20. PEPCID [Concomitant]
     Route: 065
  21. DURAGESIC-100 [Concomitant]
     Route: 061
  22. CIPROFLOXACIN HCL [Concomitant]
     Route: 042
  23. FLOXIN [Concomitant]
     Route: 042
  24. VANCOMYCIN [Concomitant]
     Route: 042
  25. DESYREL [Concomitant]
     Route: 048

REACTIONS (27)
  - ANGINA UNSTABLE [None]
  - ANGIOPATHY [None]
  - CARDIAC ARREST [None]
  - CARDIAC DISORDER [None]
  - CARDIAC FAILURE CONGESTIVE [None]
  - CAROTID ARTERY DISEASE [None]
  - CEREBROVASCULAR ACCIDENT [None]
  - CHRONIC OBSTRUCTIVE PULMONARY DISEASE [None]
  - CONVULSION [None]
  - CORONARY ARTERY DISEASE [None]
  - FALL [None]
  - FEMORAL ARTERY OCCLUSION [None]
  - GROIN INFECTION [None]
  - HYPOTENSION [None]
  - MENTAL STATUS CHANGES [None]
  - MYOCARDIAL INFARCTION [None]
  - NIGHT SWEATS [None]
  - OEDEMA PERIPHERAL [None]
  - OVERDOSE [None]
  - PYREXIA [None]
  - RENAL FAILURE ACUTE [None]
  - SEPSIS [None]
  - SKIN ULCER [None]
  - THROMBOPHLEBITIS [None]
  - TRANSIENT ISCHAEMIC ATTACK [None]
  - VASCULAR GRAFT OCCLUSION [None]
  - WOUND [None]
